FAERS Safety Report 25218016 (Version 1)
Quarter: 2025Q2

REPORT INFORMATION
  Report Type: Report from Study
  Country: CA (occurrence: CA)
  Receive Date: 20250421
  Receipt Date: 20250421
  Transmission Date: 20250717
  Serious: Yes (Other)
  Sender: SANDOZ
  Company Number: CA-SANDOZ-SDZ2025CA024469

PATIENT
  Age: 89 Year
  Sex: Male

DRUGS (1)
  1. WYOST [Suspect]
     Active Substance: DENOSUMAB-BBDZ
     Indication: Metastases to bone
     Dosage: 120MG/ML;MONTHLY (Q 4 WEEKS)
     Route: 058

REACTIONS (1)
  - Myocardial infarction [Unknown]

NARRATIVE: CASE EVENT DATE: 20250201
